FAERS Safety Report 10094832 (Version 1)
Quarter: 2014Q2

REPORT INFORMATION
  Report Type: Spontaneous
  Country: US (occurrence: US)
  Receive Date: 20140422
  Receipt Date: 20140422
  Transmission Date: 20141212
  Serious: Yes (Other)
  Sender: FDA-Public Use
  Company Number: US-009507513-1404USA011507

PATIENT
  Age: 41 Year
  Sex: Female

DRUGS (2)
  1. ISENTRESS [Suspect]
     Dosage: TOTAL DAILY DOSE 800MG/ DAY
     Route: 048
  2. TRUVADA [Suspect]
     Dosage: UNK
     Route: 048

REACTIONS (1)
  - Abortion spontaneous [Recovered/Resolved]
